FAERS Safety Report 9124541 (Version 3)
Quarter: 2015Q1

REPORT INFORMATION
  Report Type: Report from Study
  Country: GR (occurrence: GR)
  Receive Date: 20130227
  Receipt Date: 20150323
  Transmission Date: 20150721
  Serious: Yes (Hospitalization)
  Sender: FDA-Public Use
  Company Number: GR-JNJFOC-20130212867

PATIENT
  Age: 37 Year
  Sex: Female
  Weight: 52.5 kg

DRUGS (5)
  1. METRONIDAZOL [Concomitant]
     Active Substance: METRONIDAZOLE
     Indication: ABDOMINAL PAIN
     Dosage: CONFLICTING INFORMATION REPORTS STOP DATE  AS 17-FEB-2012
     Route: 048
     Dates: start: 20130213
  2. METRONIDAZOL [Concomitant]
     Active Substance: METRONIDAZOLE
     Indication: PYREXIA
     Dosage: CONFLICTING INFORMATION REPORTS STOP DATE  AS 17-FEB-2012
     Route: 048
     Dates: start: 20130213
  3. REMICADE [Suspect]
     Active Substance: INFLIXIMAB
     Indication: CROHN^S DISEASE
     Route: 042
     Dates: start: 20120625
  4. VENLAFAXINE [Concomitant]
     Active Substance: VENLAFAXINE HYDROCHLORIDE
     Indication: DEPRESSION
     Route: 048
     Dates: start: 20121025
  5. REMICADE [Suspect]
     Active Substance: INFLIXIMAB
     Indication: CROHN^S DISEASE
     Dosage: DOSE IN SERIES: 5
     Route: 042
     Dates: start: 20130104

REACTIONS (1)
  - Crohn^s disease [Recovered/Resolved]

NARRATIVE: CASE EVENT DATE: 20130218
